FAERS Safety Report 21025816 (Version 1)
Quarter: 2022Q2

REPORT INFORMATION
  Report Type: Spontaneous
  Country: CZ (occurrence: CZ)
  Receive Date: 20220630
  Receipt Date: 20220630
  Transmission Date: 20220721
  Serious: Yes (Hospitalization)
  Sender: FDA-Public Use
  Company Number: CZ-JNJFOC-20220647479

PATIENT
  Age: 58 Year
  Sex: Female

DRUGS (6)
  1. TREMFYA [Suspect]
     Active Substance: GUSELKUMAB
     Indication: Psoriasis
     Route: 058
     Dates: start: 20200715
  2. TREMFYA [Suspect]
     Active Substance: GUSELKUMAB
  3. TREMFYA [Suspect]
     Active Substance: GUSELKUMAB
  4. BIOFENAC [DICLOFENAC SODIUM] [Concomitant]
  5. OMEPRAZOLE [Concomitant]
     Active Substance: OMEPRAZOLE
  6. REQUIP [Concomitant]
     Active Substance: ROPINIROLE HYDROCHLORIDE

REACTIONS (1)
  - COVID-19 [Unknown]

NARRATIVE: CASE EVENT DATE: 20220426
